FAERS Safety Report 9416290 (Version 1)
Quarter: 2013Q3

REPORT INFORMATION
  Report Type: Spontaneous
  Country: DE (occurrence: DE)
  Receive Date: 20130724
  Receipt Date: 20130724
  Transmission Date: 20140515
  Serious: Yes (Hospitalization)
  Sender: FDA-Public Use
  Company Number: DE-RANBAXY-2013RR-71332

PATIENT
  Age: 34 Year
  Sex: Female
  Weight: 75 kg

DRUGS (4)
  1. METFORMIN [Suspect]
     Indication: SUICIDAL IDEATION
     Dosage: UNK
     Route: 065
  2. SEROQUEL [Concomitant]
     Indication: DELUSIONAL DISORDER, UNSPECIFIED TYPE
     Dosage: 200 MG
     Route: 048
  3. RISPERDAL CONSTA [Concomitant]
     Indication: DELUSIONAL DISORDER, UNSPECIFIED TYPE
     Dosage: 25 MG
     Route: 030
  4. AKINETON RETARD [Concomitant]
     Indication: DELUSIONAL DISORDER, UNSPECIFIED TYPE
     Dosage: 4 MG
     Route: 048

REACTIONS (2)
  - Lactic acidosis [Unknown]
  - Intentional overdose [Unknown]
